FAERS Safety Report 4462024-8 (Version None)
Quarter: 2004Q3

REPORT INFORMATION
  Report Type: 
  Country: None (occurrence: None)
  Receive Date: 20040924
  Receipt Date: 20040924
  Transmission Date: 20050211
  Serious: Yes (Hospitalization)
  Sender: FDA-Public Use
  Company Number: None

PATIENT
  Age: 30 Year
  Sex: Female
  Weight: 99 kg

DRUGS (1)
  1. TEMOZOLOMIDE [Suspect]

REACTIONS (2)
  - FALL [None]
  - THORACIC VERTEBRAL FRACTURE [None]
